FAERS Safety Report 25899709 (Version 2)
Quarter: 2025Q4

REPORT INFORMATION
  Report Type: Spontaneous
  Country: US (occurrence: US)
  Receive Date: 20251009
  Receipt Date: 20251014
  Transmission Date: 20260118
  Serious: No
  Sender: TRIS PHARMA, INC.
  Company Number: US-TRIS PHARMA, INC.-25US012111

PATIENT

DRUGS (3)
  1. DYANAVEL XR [Suspect]
     Active Substance: AMPHETAMINE
     Indication: Attention deficit hyperactivity disorder
     Dosage: 20 MILLIGRAM, ONCE QD (IN THE MORNING)
     Route: 048
     Dates: start: 20250911, end: 20250926
  2. DYANAVEL XR [Suspect]
     Active Substance: AMPHETAMINE
     Dosage: 10 MILLIGRAM, ONCE QD (IN THE MORNING)
     Route: 048
     Dates: start: 2025, end: 2025
  3. LEXAPRO [Concomitant]
     Active Substance: ESCITALOPRAM OXALATE
     Indication: Product used for unknown indication
     Dosage: UNK

REACTIONS (4)
  - Bowel movement irregularity [Recovered/Resolved]
  - Abdominal discomfort [Recovered/Resolved]
  - Off label use [Unknown]
  - Diarrhoea [Recovered/Resolved]

NARRATIVE: CASE EVENT DATE: 20250101
